FAERS Safety Report 6331067-1 (Version None)
Quarter: 2009Q3

REPORT INFORMATION
  Report Type: 
  Country: None (occurrence: None)
  Receive Date: 20090827
  Receipt Date: 20090819
  Transmission Date: 20100115
  Serious: Yes (Hospitalization)
  Sender: FDA-Public Use
  Company Number: B0590158A

PATIENT
  Sex: Female

DRUGS (7)
  1. ZOVIRAX [Suspect]
     Dosage: 600MG THREE TIMES PER DAY
     Route: 042
     Dates: start: 20090710, end: 20090716
  2. SALAZOPYRIN [Suspect]
     Indication: DRUG USE FOR UNKNOWN INDICATION
     Dosage: 500MG THREE TIMES PER DAY
     Route: 048
     Dates: start: 20090612, end: 20090708
  3. DAFALGAN [Suspect]
     Indication: DRUG USE FOR UNKNOWN INDICATION
     Dosage: 1G AS REQUIRED
     Route: 048
     Dates: start: 20090710, end: 20090718
  4. DIPROPHOS [Concomitant]
     Indication: ARTHRITIS
     Dosage: 1UNIT SINGLE DOSE
     Route: 014
     Dates: start: 20090616, end: 20090616
  5. DEPO-MEDROL [Concomitant]
     Indication: ARTHRITIS
     Dosage: 1UNIT SINGLE DOSE
     Route: 058
     Dates: start: 20090612, end: 20090612
  6. FLOXAPEN [Concomitant]
     Dosage: 1000MG FOUR TIMES PER DAY
     Route: 042
     Dates: start: 20090723, end: 20090726
  7. CLINDAMYCIN HCL [Concomitant]
     Dosage: 900MG THREE TIMES PER DAY
     Route: 048
     Dates: start: 20090626

REACTIONS (2)
  - DRUG ERUPTION [None]
  - RASH VESICULAR [None]
